FAERS Safety Report 21924888 (Version 1)
Quarter: 2023Q1

REPORT INFORMATION
  Report Type: Spontaneous
  Country: US (occurrence: US)
  Receive Date: 20230130
  Receipt Date: 20230130
  Transmission Date: 20230417
  Serious: No
  Sender: FDA-Public Use
  Company Number: US-ELI_LILLY_AND_COMPANY-US202301008093

PATIENT
  Age: 80 Year
  Sex: Female

DRUGS (1)
  1. ZYPREXA [Suspect]
     Active Substance: OLANZAPINE
     Indication: Vascular dementia
     Dosage: UNK UNK, UNKNOWN
     Route: 065
     Dates: start: 2012

REACTIONS (6)
  - Gait inability [Unknown]
  - Joint swelling [Unknown]
  - Thinking abnormal [Unknown]
  - Swelling [Unknown]
  - Off label use [Unknown]
  - Swelling face [Unknown]
